FAERS Safety Report 19918127 (Version 1)
Quarter: 2021Q4

REPORT INFORMATION
  Report Type: Spontaneous
  Country: IT (occurrence: IT)
  Receive Date: 20211005
  Receipt Date: 20211005
  Transmission Date: 20220303
  Serious: Yes (Death, Life-Threatening, Other)
  Sender: FDA-Public Use
  Company Number: IT-AMGEN-ITASP2021150165

PATIENT

DRUGS (1)
  1. FILGRASTIM [Suspect]
     Active Substance: FILGRASTIM
     Indication: Allogenic stem cell transplantation
     Dosage: 10 MICROGRAM/KILOGRAM, QD (FOR 5 TO 6 DAYS)
     Route: 065

REACTIONS (36)
  - Death [Fatal]
  - Nervous system disorder [Fatal]
  - Multiple organ dysfunction syndrome [Fatal]
  - Cardiac failure [Fatal]
  - Encephalopathy [Fatal]
  - Hepatic failure [Fatal]
  - Graft versus host disease [Fatal]
  - Myelodysplastic syndrome [Fatal]
  - Cytomegalovirus gastritis [Unknown]
  - Cytomegalovirus infection reactivation [Unknown]
  - Pneumonia cytomegaloviral [Unknown]
  - Epstein-Barr virus infection reactivation [Unknown]
  - Bronchopulmonary aspergillosis [Unknown]
  - Sinusitis aspergillus [Unknown]
  - Pneumonia [Unknown]
  - Gastrointestinal inflammation [Unknown]
  - Pneumonia parainfluenzae viral [Unknown]
  - Viral haemorrhagic cystitis [Unknown]
  - Transplant failure [Unknown]
  - Candida sepsis [Unknown]
  - Pneumonia influenzal [Unknown]
  - Coronavirus pneumonia [Unknown]
  - Pneumonia viral [Unknown]
  - Pneumonia respiratory syncytial viral [Unknown]
  - Gastrointestinal candidiasis [Unknown]
  - JC virus infection [Unknown]
  - Pneumonia fungal [Unknown]
  - Pneumonia bacterial [Unknown]
  - Bacteraemia [Unknown]
  - Sepsis [Unknown]
  - Stomatitis [Unknown]
  - Therapy partial responder [Unknown]
  - Human herpesvirus 6 infection reactivation [Unknown]
  - Gastroenteritis [Unknown]
  - Disease recurrence [Unknown]
  - Disease progression [Unknown]
